FAERS Safety Report 10675684 (Version 4)
Quarter: 2015Q1

REPORT INFORMATION
  Report Type: Report from Study
  Country: US (occurrence: US)
  Receive Date: 20141224
  Receipt Date: 20150210
  Transmission Date: 20150720
  Serious: Yes (Death, Hospitalization)
  Sender: FDA-Public Use
  Company Number: US-BRISTOL-MYERS SQUIBB COMPANY-21651260

PATIENT
  Age: 81 Year
  Sex: Male

DRUGS (6)
  1. NIVOLUMAB [Suspect]
     Active Substance: NIVOLUMAB
     Indication: NEOPLASM
     Dosage: 165 MG, QD
     Route: 042
     Dates: start: 20141112, end: 20141112
  2. NITROGLYCERIN. [Concomitant]
     Active Substance: NITROGLYCERIN
  3. POLYETHYLENE GLYCOL [Concomitant]
     Active Substance: POLYETHYLENE GLYCOLS
  4. IPILIMUMAB [Suspect]
     Active Substance: IPILIMUMAB
     Indication: NEOPLASM
     Dosage: 55 MG, QD
     Route: 042
     Dates: start: 20141112, end: 20141112
  5. ASPIRIN. [Concomitant]
     Active Substance: ASPIRIN
  6. SENNOSIDE [Concomitant]
     Active Substance: SENNOSIDES

REACTIONS (1)
  - Myocarditis [Fatal]

NARRATIVE: CASE EVENT DATE: 20141126
